FAERS Safety Report 4557649-5 (Version None)
Quarter: 2005Q1

REPORT INFORMATION
  Report Type: 
  Country: None (occurrence: None)
  Receive Date: 20050103
  Receipt Date: 20040812
  Transmission Date: 20050727
  Serious: Yes (Other)
  Sender: FDA-Public Use
  Company Number: 2004UW17158

PATIENT
  Age: 80 Year
  Sex: Female
  Weight: 69.4003 kg

DRUGS (10)
  1. CRESTOR [Suspect]
     Indication: BLOOD CHOLESTEROL INCREASED
     Dosage: 10 MG PO
     Route: 048
  2. ZYRTEC [Concomitant]
  3. LORAZEPAM [Concomitant]
  4. DICYCOLMINE [Concomitant]
  5. CELEBREX [Concomitant]
  6. VENAZETRIL [Concomitant]
  7. PREVACID [Concomitant]
  8. METOPROLOL [Concomitant]
  9. MULTIVITAMIN [Concomitant]
  10. PROPOXY [Concomitant]

REACTIONS (1)
  - MOUTH ULCERATION [None]
